FAERS Safety Report 26151983 (Version 1)
Quarter: 2025Q4

REPORT INFORMATION
  Report Type: Spontaneous
  Country: GB (occurrence: GB)
  Receive Date: 20251214
  Receipt Date: 20251214
  Transmission Date: 20260117
  Serious: Yes (Death, Other)
  Sender: HIKMA
  Company Number: None

PATIENT
  Sex: Female

DRUGS (2)
  1. CIPROFLOXACIN [Suspect]
     Active Substance: CIPROFLOXACIN
     Indication: Osteomyelitis
     Dosage: 500 MILLIGRAM, BID
     Route: 065
     Dates: start: 20250107
  2. DOXYCYCLINE [Suspect]
     Active Substance: DOXYCYCLINE
     Indication: Osteomyelitis
     Dosage: UNK
     Route: 065

REACTIONS (2)
  - Aspiration [Fatal]
  - Seizure [Not Recovered/Not Resolved]

NARRATIVE: CASE EVENT DATE: 20251011
